FAERS Safety Report 20597501 (Version 1)
Quarter: 2022Q1

REPORT INFORMATION
  Report Type: Spontaneous
  Country: US (occurrence: None)
  Receive Date: 20220315
  Receipt Date: 20220315
  Transmission Date: 20220423
  Serious: Yes (Death, Life-Threatening, Hospitalization)
  Sender: FDA-Public Use
  Company Number: None

PATIENT
  Age: 63 Year
  Sex: Female

DRUGS (8)
  1. COLCHICINE [Suspect]
     Active Substance: COLCHICINE
     Indication: Gout
  2. ASPIRIN [Concomitant]
     Active Substance: ASPIRIN
  3. CLONIDINE HYDROCHLORIDE [Concomitant]
     Active Substance: CLONIDINE HYDROCHLORIDE
  4. cydobenzaprine [Concomitant]
  5. GABAPENTIN [Concomitant]
     Active Substance: GABAPENTIN
  6. HYDRALAZINE [Concomitant]
     Active Substance: HYDRALAZINE HYDROCHLORIDE
  7. METOLAZONE [Concomitant]
     Active Substance: METOLAZONE
  8. NOVOLIN 70/30 [Concomitant]
     Active Substance: INSULIN HUMAN

REACTIONS (15)
  - Discoloured vomit [None]
  - Rheumatoid arthritis [None]
  - Septic shock [None]
  - Multiple organ dysfunction syndrome [None]
  - Acute respiratory failure [None]
  - Hypercapnia [None]
  - Acute kidney injury [None]
  - Chronic kidney disease [None]
  - Renal tubular necrosis [None]
  - Metabolic encephalopathy [None]
  - Atrial fibrillation [None]
  - Urinary tract infection [None]
  - Pneumonia [None]
  - Obesity [None]
  - Hepatic steatosis [None]

NARRATIVE: CASE EVENT DATE: 20200510
